FAERS Safety Report 18100070 (Version 1)
Quarter: 2020Q3

REPORT INFORMATION
  Report Type: Spontaneous
  Country: US (occurrence: US)
  Receive Date: 20200731
  Receipt Date: 20200731
  Transmission Date: 20201103
  Serious: No
  Sender: FDA-Public Use
  Company Number: US-BAYER-2020-114241

PATIENT
  Age: 85 Year
  Sex: Female

DRUGS (2)
  1. MIRALAX [Suspect]
     Active Substance: POLYETHYLENE GLYCOL 3350
     Indication: GASTROINTESTINAL DISORDER
     Dosage: UNK UNK, QD
     Dates: start: 2015
  2. MIRALAX [Suspect]
     Active Substance: POLYETHYLENE GLYCOL 3350
     Indication: GASTROINTESTINAL DISORDER
     Dosage: 1 DF QD (TAKE ENTIRE CAP FULL DOSE)
     Route: 048
     Dates: start: 20200520, end: 20200610

REACTIONS (5)
  - Drug ineffective [Unknown]
  - Product taste abnormal [None]
  - Incorrect product administration duration [Unknown]
  - Product solubility abnormal [None]
  - Incorrect dose administered [None]

NARRATIVE: CASE EVENT DATE: 20200520
